FAERS Safety Report 4273259-1 (Version None)
Quarter: 2004Q1

REPORT INFORMATION
  Report Type: 
  Country: None (occurrence: None)
  Receive Date: 20040116
  Receipt Date: 20040108
  Transmission Date: 20041129
  Serious: Yes (Hospitalization)
  Sender: FDA-Public Use
  Company Number: CA-ROCHE-355721

PATIENT
  Age: 16 Year
  Sex: Male

DRUGS (3)
  1. ACCUTANE [Suspect]
     Indication: ACNE
     Route: 048
     Dates: start: 20031015, end: 20031215
  2. MINOCYCLINE HCL [Concomitant]
     Dosage: PATIENT TOOK OVERDOSE OF 60 MINOCYCLINE CAPSULES.
  3. CEPHALEXIN [Concomitant]
     Dosage: PATIENT TOOK OVERDOSE OF 16 X 500 MG CEPHALEXIN TABLETS.

REACTIONS (8)
  - ABNORMAL BEHAVIOUR [None]
  - DECREASED APPETITE [None]
  - HYPERSOMNIA [None]
  - ILL-DEFINED DISORDER [None]
  - MOOD ALTERED [None]
  - OVERDOSE [None]
  - SUICIDAL IDEATION [None]
  - SUICIDE ATTEMPT [None]
